FAERS Safety Report 5048934-1 (Version None)
Quarter: 2006Q3

REPORT INFORMATION
  Report Type: 
  Country: None (occurrence: None)
  Receive Date: 20060712
  Receipt Date: 20050901
  Transmission Date: 20061208
  Serious: No
  Sender: FDA-Public Use
  Company Number: US-GLAXOSMITHKLINE-A0572738A

PATIENT
  Age: 21 Year
  Sex: Female

DRUGS (3)
  1. IMITREX [Suspect]
     Indication: MIGRAINE
     Dosage: 50MG AS REQUIRED
     Route: 048
  2. PREVACID [Suspect]
  3. ACIPHEX [Suspect]

REACTIONS (3)
  - DYSARTHRIA [None]
  - EUPHORIC MOOD [None]
  - INCOHERENT [None]
